FAERS Safety Report 9225227 (Version 1)
Quarter: 2013Q1

REPORT INFORMATION
  Report Type: Spontaneous
  Country: US (occurrence: None)
  Receive Date: 20120924
  Receipt Date: 20120924
  Transmission Date: 20140127
  Serious: Yes (Other)
  Sender: FDA-Public Use
  Company Number: 2012ST000446

PATIENT
  Age: 12 Year
  Sex: Male

DRUGS (1)
  1. MATULANE [Suspect]
     Indication: HODGKIN^S DISEASE
     Route: 048
     Dates: start: 20120222

REACTIONS (2)
  - Thrombosis [None]
  - Blood count abnormal [None]
